FAERS Safety Report 5318864-6 (Version None)
Quarter: 2007Q1

REPORT INFORMATION
  Report Type: 
  Country: None (occurrence: None)
  Receive Date: 20070201
  Receipt Date: 20061220
  Transmission Date: 20070707
  Serious: No
  Sender: FDA-Public Use
  Company Number: VNL_0347_2006

PATIENT
  Age: 76 Year
  Sex: Female

DRUGS (16)
  1. APOKYN [Suspect]
     Indication: PARKINSON'S DISEASE
     Dosage: 0.2 ML TID SC
     Route: 058
     Dates: start: 20061101, end: 20061201
  2. APOKYN [Suspect]
     Indication: PARKINSON'S DISEASE
     Dosage: 0.2 ML 4 TIMES A DAY SC
     Route: 058
     Dates: start: 20060101, end: 20061101
  3. APOKYN [Suspect]
     Indication: PARKINSON'S DISEASE
     Dosage: 0.2 ML 5XD SC
     Route: 058
     Dates: start: 20061101, end: 20061201
  4. APOKYN [Suspect]
     Indication: PARKINSON'S DISEASE
     Dosage: 0.2 ML ONCE SC
     Route: 058
     Dates: start: 20061220
  5. AMANTADINE HCL [Concomitant]
  6. RESTORIL [Concomitant]
  7. HYDROCHLOROTHIAZINE [Concomitant]
  8. POTASSIUM ACETATE [Concomitant]
  9. SINEMET [Concomitant]
  10. COMTAN [Concomitant]
  11. CLONAZEPAM [Concomitant]
  12. DETROL [Concomitant]
  13. TOPROL-XL [Concomitant]
  14. CYMBALTA [Concomitant]
  15. TIGAN [Concomitant]
  16. BALCOFEN [Concomitant]

REACTIONS (7)
  - DYSSTASIA [None]
  - GAIT DISTURBANCE [None]
  - HYPOAESTHESIA [None]
  - IMMOBILE [None]
  - MUSCLE RIGIDITY [None]
  - MUSCULAR WEAKNESS [None]
  - PHARMACEUTICAL PRODUCT COMPLAINT [None]
